FAERS Safety Report 25857578 (Version 1)
Quarter: 2025Q3

REPORT INFORMATION
  Report Type: Spontaneous
  Country: US (occurrence: US)
  Receive Date: 20250929
  Receipt Date: 20250929
  Transmission Date: 20251020
  Serious: Yes (Other)
  Sender: Steriscience PTE
  Company Number: US-STERISCIENCE B.V.-2025-ST-001528

PATIENT
  Age: 69 Year
  Sex: Male

DRUGS (1)
  1. VANCOMYCIN [Suspect]
     Active Substance: VANCOMYCIN
     Indication: Diarrhoea
     Route: 065

REACTIONS (4)
  - Cutaneous vasculitis [Unknown]
  - Linear IgA disease [Unknown]
  - Overlap syndrome [Unknown]
  - Off label use [Unknown]
